FAERS Safety Report 22996241 (Version 2)
Quarter: 2023Q4

REPORT INFORMATION
  Report Type: Spontaneous
  Country: US (occurrence: US)
  Receive Date: 20230927
  Receipt Date: 20231030
  Transmission Date: 20240109
  Serious: No
  Sender: FDA-Public Use
  Company Number: US-BRISTOL-MYERS SQUIBB COMPANY-2023-137563

PATIENT
  Age: 86 Year
  Sex: Female
  Weight: 49.9 kg

DRUGS (1)
  1. POMALYST [Suspect]
     Active Substance: POMALIDOMIDE
     Indication: Plasma cell myeloma
     Dosage: 21D Q 28DAYS
     Route: 048
     Dates: start: 20201201

REACTIONS (2)
  - COVID-19 [Recovered/Resolved]
  - Herpes zoster [Recovering/Resolving]
